FAERS Safety Report 4685569-4 (Version None)
Quarter: 2005Q2

REPORT INFORMATION
  Report Type: 
  Country: None (occurrence: None)
  Receive Date: 20050607
  Receipt Date: 20050607
  Transmission Date: 20051028
  Serious: Yes (Hospitalization)
  Sender: FDA-Public Use
  Company Number: None

PATIENT
  Age: 79 Year
  Sex: Male

DRUGS (2)
  1. COUMADIN [Suspect]
     Indication: DEEP VEIN THROMBOSIS
     Dosage: 7.5 MG QD  10 MG WED/SUN
  2. COUMADIN [Suspect]
     Indication: PULMONARY EMBOLISM
     Dosage: 7.5 MG QD  10 MG WED/SUN

REACTIONS (2)
  - COAGULOPATHY [None]
  - HAEMATURIA [None]
